FAERS Safety Report 23237828 (Version 1)
Quarter: 2023Q4

REPORT INFORMATION
  Report Type: Spontaneous
  Country: GB (occurrence: GB)
  Receive Date: 20231128
  Receipt Date: 20231128
  Transmission Date: 20240110
  Serious: Yes (Other)
  Sender: FDA-Public Use
  Company Number: None

PATIENT
  Age: 68 Year
  Sex: Female

DRUGS (2)
  1. ATORVASTATIN [Suspect]
     Active Substance: ATORVASTATIN
     Indication: Blood cholesterol
     Dosage: 20MG DAILY; ;
     Dates: start: 202106, end: 20231101
  2. CARBIMAZOLE [Concomitant]
     Active Substance: CARBIMAZOLE
     Indication: Graves^ disease
     Dates: start: 2017

REACTIONS (1)
  - Cough [Recovering/Resolving]
